FAERS Safety Report 6312692-0 (Version None)
Quarter: 2009Q3

REPORT INFORMATION
  Report Type: 
  Country: None (occurrence: None)
  Receive Date: 20090814
  Receipt Date: 20090814
  Transmission Date: 20100115
  Serious: Yes (Hospitalization)
  Sender: FDA-Public Use
  Company Number: None

PATIENT
  Age: 90 Year
  Sex: Male
  Weight: 85.8 kg

DRUGS (1)
  1. MAALOX TOTAL STOMACH RELIEF  525 MG BISMUTH SUBSALICYLATE/15ML NOVARTI [Suspect]
     Dosage: INTERMITTENTLY PO
     Route: 048

REACTIONS (4)
  - ABDOMINAL PAIN LOWER [None]
  - DIARRHOEA [None]
  - FAECES DISCOLOURED [None]
  - MELAENA [None]
